FAERS Safety Report 6025772-4 (Version None)
Quarter: 2008Q4

REPORT INFORMATION
  Report Type: 
  Country: None (occurrence: None)
  Receive Date: 20081224
  Receipt Date: 20081218
  Transmission Date: 20090506
  Serious: Yes (Hospitalization, Other)
  Sender: FDA-Public Use
  Company Number: PAR_02483_2008

PATIENT
  Age: 92 Year
  Sex: Female

DRUGS (1)
  1. MECLIZINE HCL [Suspect]
     Indication: VERTIGO
     Dosage: (DF ORAL), (DF ORAL)

REACTIONS (12)
  - CEREBROVASCULAR ACCIDENT [None]
  - CONDITION AGGRAVATED [None]
  - CORNEAL REFLEX DECREASED [None]
  - DIZZINESS [None]
  - DYSARTHRIA [None]
  - DYSKINESIA [None]
  - DYSPNOEA [None]
  - FALL [None]
  - INAPPROPRIATE SCHEDULE OF DRUG ADMINISTRATION [None]
  - MUSCLE TWITCHING [None]
  - PELVIC FRACTURE [None]
  - VERTIGO [None]
